FAERS Safety Report 21810809 (Version 1)
Quarter: 2023Q1

REPORT INFORMATION
  Report Type: Spontaneous
  Country: US (occurrence: US)
  Receive Date: 20230103
  Receipt Date: 20230103
  Transmission Date: 20230417
  Serious: Yes (Other)
  Sender: FDA-Public Use
  Company Number: US-COOPERSURGICAL, INC.-US-2022CPS002029

PATIENT
  Sex: Female
  Weight: 121.09 kg

DRUGS (1)
  1. PARAGARD T 380A [Suspect]
     Active Substance: COPPER
     Indication: Product used for unknown indication
     Dosage: UNK
     Route: 015
     Dates: start: 2016

REACTIONS (16)
  - Breast mass [Unknown]
  - Cervix inflammation [Unknown]
  - Device breakage [Not Recovered/Not Resolved]
  - Foreign body in reproductive tract [Not Recovered/Not Resolved]
  - Complication of device removal [Not Recovered/Not Resolved]
  - Complication associated with device [Unknown]
  - Coital bleeding [Unknown]
  - Device material issue [Unknown]
  - Cervical cyst [Unknown]
  - Dysuria [Unknown]
  - Menstruation irregular [Unknown]
  - Heavy menstrual bleeding [Unknown]
  - Dysmenorrhoea [Unknown]
  - Device expulsion [Not Recovered/Not Resolved]
  - Bacterial vaginosis [Unknown]
  - Vulvovaginal candidiasis [Unknown]

NARRATIVE: CASE EVENT DATE: 20220101
